FAERS Safety Report 5825361-8 (Version None)
Quarter: 2008Q3

REPORT INFORMATION
  Report Type: 
  Country: None (occurrence: None)
  Receive Date: 20080729
  Receipt Date: 20080718
  Transmission Date: 20090109
  Serious: Yes (Death, Hospitalization)
  Sender: FDA-Public Use
  Company Number: US-SP-2008-01964

PATIENT
  Age: 79 Year
  Sex: Male

DRUGS (2)
  1. BOTULISM ANTITOXIN ABE [Suspect]
     Indication: BOTULISM
     Route: 042
     Dates: start: 20070510
  2. BOTULISM AB [Suspect]
     Indication: BOTULISM
     Route: 042
     Dates: start: 20070510

REACTIONS (3)
  - BOTULISM [None]
  - PNEUMONIA [None]
  - RESPIRATORY FAILURE [None]
